FAERS Safety Report 7440349-1 (Version None)
Quarter: 2011Q2

REPORT INFORMATION
  Report Type: 
  Country: None (occurrence: None)
  Receive Date: 20110427
  Receipt Date: 20110421
  Transmission Date: 20111010
  Serious: Yes (Hospitalization)
  Sender: FDA-Public Use
  Company Number: FR-MERCK-1102FRA00138

PATIENT
  Sex: Female

DRUGS (3)
  1. ALENDRONATE SODIUM [Suspect]
     Indication: OSTEOPOROSIS
     Route: 048
     Dates: start: 20060201, end: 20080101
  2. FOSAMAX PLUS D [Suspect]
     Indication: OSTEOPOROSIS
     Route: 048
     Dates: start: 20080101, end: 20091201
  3. CALCIUM CARBONATE AND CHOLECALCIFEROL [Concomitant]
     Route: 065
     Dates: start: 20060201, end: 20080101

REACTIONS (4)
  - IMPAIRED HEALING [None]
  - OSTEONECROSIS OF JAW [None]
  - OPEN WOUND [None]
  - TOOTH DISORDER [None]
